FAERS Safety Report 16288542 (Version 4)
Quarter: 2020Q4

REPORT INFORMATION
  Report Type: Report from Study
  Country: None (occurrence: US)
  Receive Date: 20190509
  Receipt Date: 20201231
  Transmission Date: 20210113
  Serious: Yes (Death, Hospitalization, Other)
  Sender: FDA-Public Use
  Company Number: US-ABBVIE-19K-163-2775304-00

PATIENT
  Age: 75 Year
  Sex: Male
  Weight: 72.3 kg

DRUGS (22)
  1. FLOMAX [Concomitant]
     Active Substance: TAMSULOSIN HYDROCHLORIDE
     Indication: PRODUCT USED FOR UNKNOWN INDICATION
  2. REGLAN [Concomitant]
     Active Substance: METOCLOPRAMIDE HYDROCHLORIDE
     Indication: PRODUCT USED FOR UNKNOWN INDICATION
  3. TOPROL XL [Concomitant]
     Active Substance: METOPROLOL SUCCINATE
     Indication: INFECTION PROPHYLAXIS
  4. FLUCONAZOLE. [Concomitant]
     Active Substance: FLUCONAZOLE
     Indication: INFECTION PROPHYLAXIS
  5. PROTONIX [Concomitant]
     Active Substance: PANTOPRAZOLE SODIUM
     Indication: INFECTION PROPHYLAXIS
  6. VENETOCLAX. [Suspect]
     Active Substance: VENETOCLAX
     Indication: T-CELL PROLYMPHOCYTIC LEUKAEMIA
     Route: 048
     Dates: start: 20180322, end: 20180324
  7. VENETOCLAX. [Suspect]
     Active Substance: VENETOCLAX
     Route: 048
     Dates: start: 201803, end: 20180620
  8. VALTREX [Concomitant]
     Active Substance: VALACYCLOVIR HYDROCHLORIDE
     Indication: PRODUCT USED FOR UNKNOWN INDICATION
  9. ATIVAN [Concomitant]
     Active Substance: LORAZEPAM
     Indication: INFECTION PROPHYLAXIS
  10. SIMVASTATIN. [Concomitant]
     Active Substance: SIMVASTATIN
     Indication: PRODUCT USED FOR UNKNOWN INDICATION
  11. BACTRIM [Concomitant]
     Active Substance: SULFAMETHOXAZOLE\TRIMETHOPRIM
     Indication: PROPHYLAXIS
  12. ALLOPURINOL. [Concomitant]
     Active Substance: ALLOPURINOL
     Indication: PRODUCT USED FOR UNKNOWN INDICATION
  13. VENETOCLAX. [Suspect]
     Active Substance: VENETOCLAX
     Route: 048
     Dates: start: 20180629
  14. CIDOFOVIR. [Concomitant]
     Active Substance: CIDOFOVIR
     Indication: INFECTION PROPHYLAXIS
  15. LEVAQUIN [Concomitant]
     Active Substance: LEVOFLOXACIN
     Indication: INFECTION PROPHYLAXIS
  16. REMERON [Concomitant]
     Active Substance: MIRTAZAPINE
     Indication: INFECTION PROPHYLAXIS
  17. VENETOCLAX. [Suspect]
     Active Substance: VENETOCLAX
     Route: 048
     Dates: start: 20180325, end: 20180327
  18. ALLEGRA [Concomitant]
     Active Substance: FEXOFENADINE HYDROCHLORIDE
     Indication: PRODUCT USED FOR UNKNOWN INDICATION
     Dosage: AS NEEDED
  19. ZOFRAN [Concomitant]
     Active Substance: ONDANSETRON HYDROCHLORIDE
     Indication: PRODUCT USED FOR UNKNOWN INDICATION
  20. CASPOFUNGIN [Concomitant]
     Active Substance: CASPOFUNGIN
     Indication: INFECTION PROPHYLAXIS
  21. XYZAL [Concomitant]
     Active Substance: LEVOCETIRIZINE DIHYDROCHLORIDE
     Indication: INFECTION PROPHYLAXIS
  22. SENOKOT [Concomitant]
     Active Substance: SENNOSIDES
     Indication: INFECTION PROPHYLAXIS

REACTIONS (12)
  - Ureteral disorder [Recovered/Resolved]
  - Off label use [Not Recovered/Not Resolved]
  - Leukaemia [Fatal]
  - Hypotension [Unknown]
  - T-cell prolymphocytic leukaemia [Fatal]
  - Lymphadenopathy [Not Recovered/Not Resolved]
  - Sepsis [Fatal]
  - Cystitis noninfective [Recovered/Resolved]
  - Pyelonephritis [Recovered/Resolved]
  - Bladder hypertrophy [Recovered/Resolved]
  - Bladder pain [Recovered/Resolved]
  - Back pain [Recovered/Resolved]

NARRATIVE: CASE EVENT DATE: 201803
